FAERS Safety Report 9387820 (Version 1)
Quarter: 2013Q3

REPORT INFORMATION
  Report Type: Spontaneous
  Country: US (occurrence: US)
  Receive Date: 20130708
  Receipt Date: 20130708
  Transmission Date: 20140515
  Serious: No
  Sender: FDA-Public Use
  Company Number: US-BAYER-2013-082806

PATIENT
  Age: 73 Year
  Sex: Male
  Weight: 71.66 kg

DRUGS (12)
  1. ALEVE CAPLET [Suspect]
     Dosage: 1 DF, ONCE
     Route: 048
     Dates: start: 20130625, end: 20130625
  2. ALLOPURINOL [Concomitant]
  3. SINGULAIR [Concomitant]
  4. LORATADINE [Concomitant]
  5. VITAMIN C [Concomitant]
  6. CALCIUM [Concomitant]
  7. Q10 [Concomitant]
  8. ASPIRIN [Concomitant]
  9. GARLIC [Concomitant]
  10. GLUCOSAMINE [Concomitant]
  11. PRILOSEC [Concomitant]
  12. LISINOPRIL [Concomitant]

REACTIONS (3)
  - Diarrhoea [Recovered/Resolved]
  - Abdominal discomfort [Recovered/Resolved]
  - Flatulence [Recovered/Resolved]
